FAERS Safety Report 9736693 (Version 2)
Quarter: 2015Q3

REPORT INFORMATION
  Report Type: Spontaneous
  Country: US (occurrence: US)
  Receive Date: 20131206
  Receipt Date: 20150804
  Transmission Date: 20151125
  Serious: Yes (Hospitalization)
  Sender: FDA-Public Use
  Company Number: US-GILEAD-2009-0023447

PATIENT
  Age: 70 Year
  Sex: Female
  Weight: 108.86 kg

DRUGS (13)
  1. MOEXIPRIL HCL [Concomitant]
     Active Substance: MOEXIPRIL HYDROCHLORIDE
  2. ASPIRIN. [Concomitant]
     Active Substance: ASPIRIN
  3. LETAIRIS [Suspect]
     Active Substance: AMBRISENTAN
     Indication: PULMONARY ARTERIAL HYPERTENSION
     Route: 048
     Dates: start: 20090515
  4. HYDROCHLOROTHIAZIDE/TRIAMTERENE [Concomitant]
  5. ADVAIR HFA [Concomitant]
     Active Substance: FLUTICASONE PROPIONATE\SALMETEROL XINAFOATE
  6. OXYGEN. [Concomitant]
     Active Substance: OXYGEN
  7. IBUPROFEN. [Concomitant]
     Active Substance: IBUPROFEN
  8. KLOR-CON M20 [Concomitant]
     Active Substance: POTASSIUM CHLORIDE
  9. TYLENOL [Concomitant]
     Active Substance: ACETAMINOPHEN
  10. LASIX [Concomitant]
     Active Substance: FUROSEMIDE
  11. ALBUTEROL. [Concomitant]
     Active Substance: ALBUTEROL
  12. PROAIR HFA [Concomitant]
     Active Substance: ALBUTEROL SULFATE
  13. LIPITOR [Concomitant]
     Active Substance: ATORVASTATIN CALCIUM

REACTIONS (4)
  - Oedema peripheral [Not Recovered/Not Resolved]
  - Oropharyngeal pain [Unknown]
  - Dyspnoea [Unknown]
  - Headache [Not Recovered/Not Resolved]
